FAERS Safety Report 10083918 (Version 5)
Quarter: 2014Q3

REPORT INFORMATION
  Report Type: Spontaneous
  Country: JP (occurrence: JP)
  Receive Date: 20140417
  Receipt Date: 20140715
  Transmission Date: 20150326
  Serious: Yes (Death)
  Sender: FDA-Public Use
  Company Number: JP-ROCHE-1381566

PATIENT
  Age: 65 Year
  Sex: Female
  Weight: 50 kg

DRUGS (13)
  1. SEISHOKU [Concomitant]
     Active Substance: SODIUM CHLORIDE
     Dosage: 50ML 1V
     Route: 041
  2. SEISHOKU [Concomitant]
     Active Substance: SODIUM CHLORIDE
     Dosage: 100ML 1V
     Route: 041
  3. CARBOPLATIN. [Concomitant]
     Active Substance: CARBOPLATIN
     Indication: OVARIAN CANCER RECURRENT
     Dosage: COMPLETED CYCLE 7.
     Route: 041
     Dates: start: 20130711, end: 20131127
  4. VENA [Concomitant]
     Active Substance: DIPHENHYDRAMINE HYDROCHLORIDE
     Route: 048
  5. CARBOPLATIN. [Concomitant]
     Active Substance: CARBOPLATIN
     Indication: OVARIAN CANCER METASTATIC
     Route: 041
     Dates: start: 201403, end: 201403
  6. PACLITAXEL. [Concomitant]
     Active Substance: PACLITAXEL
     Indication: OVARIAN CANCER METASTATIC
     Route: 041
     Dates: start: 201403, end: 201403
  7. ALOXI [Concomitant]
     Active Substance: PALONOSETRON HYDROCHLORIDE
     Route: 041
  8. DEXART [Concomitant]
     Active Substance: DEXAMETHASONE SODIUM PHOSPHATE
     Dosage: 6.6 MG/2ML (DECADRON) 3V
     Route: 041
  9. AVASTIN [Suspect]
     Active Substance: BEVACIZUMAB
     Indication: OVARIAN CANCER METASTATIC
     Route: 041
     Dates: start: 20140319, end: 20140319
  10. PACLITAXEL. [Concomitant]
     Active Substance: PACLITAXEL
     Indication: OVARIAN CANCER RECURRENT
     Dosage: COMPLETED CYCLE 7.
     Route: 041
     Dates: start: 20130711, end: 20131127
  11. ZANTAC [Concomitant]
     Active Substance: RANITIDINE HYDROCHLORIDE
     Dosage: 50MG/2ML 1A
     Route: 041
  12. VENA [Concomitant]
     Active Substance: DIPHENHYDRAMINE HYDROCHLORIDE
     Dosage: 10MG 5
     Route: 048
  13. SEISHOKU [Concomitant]
     Active Substance: SODIUM CHLORIDE
     Dosage: 100ML 1V
     Route: 041

REACTIONS (7)
  - Pyrexia [Unknown]
  - Death [Fatal]
  - Shock [Fatal]
  - Gastrointestinal perforation [Fatal]
  - Vomiting [Unknown]
  - Diarrhoea [Unknown]
  - Pulmonary embolism [Fatal]

NARRATIVE: CASE EVENT DATE: 201404
